FAERS Safety Report 8758268 (Version 2)
Quarter: 2012Q4

REPORT INFORMATION
  Report Type: Report from Study
  Country: BE (occurrence: BE)
  Receive Date: 20120829
  Receipt Date: 20120918
  Transmission Date: 20130627
  Serious: Yes (Other)
  Sender: FDA-Public Use
  Company Number: BE-ASTELLAS-2012US007305

PATIENT
  Age: 68 Year
  Sex: Male

DRUGS (1)
  1. ERLOTINIB TABLET [Suspect]
     Indication: PANCREATIC CARCINOMA
     Dosage: 100 mg, Unknown/D
     Route: 048
     Dates: start: 20081223, end: 20090311

REACTIONS (2)
  - Malignant neoplasm progression [Unknown]
  - Toxicity to various agents [Unknown]
